FAERS Safety Report 17910386 (Version 3)
Quarter: 2021Q2

REPORT INFORMATION
  Report Type: Spontaneous
  Country: US (occurrence: US)
  Receive Date: 20200618
  Receipt Date: 20210622
  Transmission Date: 20210717
  Serious: Yes (Other)
  Sender: FDA-Public Use
  Company Number: US-GILEAD-2020-0473224

PATIENT
  Age: 47 Year
  Sex: Male
  Weight: 53.07 kg

DRUGS (40)
  1. CORTISONE [Concomitant]
     Active Substance: CORTISONE
  2. VANCOMYCIN [Concomitant]
     Active Substance: VANCOMYCIN
  3. ARANESP [Concomitant]
     Active Substance: DARBEPOETIN ALFA
  4. ENALAPRIL [Concomitant]
     Active Substance: ENALAPRIL
  5. ATIVAN [Concomitant]
     Active Substance: LORAZEPAM
  6. HYDROCORTISONE. [Concomitant]
     Active Substance: HYDROCORTISONE
  7. PERIACTIN [Concomitant]
     Active Substance: CYPROHEPTADINE HYDROCHLORIDE
  8. MEGACE [Concomitant]
     Active Substance: MEGESTROL ACETATE
  9. FINASTERIDE. [Concomitant]
     Active Substance: FINASTERIDE
  10. DIFLUCAN [Concomitant]
     Active Substance: FLUCONAZOLE
  11. VENOFER [Concomitant]
     Active Substance: IRON SUCROSE
  12. CLONIDINE. [Concomitant]
     Active Substance: CLONIDINE
  13. GASTROVIEW [Concomitant]
  14. EPIVIR [Concomitant]
     Active Substance: LAMIVUDINE
     Indication: HIV INFECTION
  15. PREZISTA [Concomitant]
     Active Substance: DARUNAVIR ETHANOLATE
     Indication: HIV INFECTION
  16. PAXIL [Concomitant]
     Active Substance: PAROXETINE HYDROCHLORIDE
  17. IBUPROFEN. [Concomitant]
     Active Substance: IBUPROFEN
  18. DRONABINOL. [Concomitant]
     Active Substance: DRONABINOL
  19. SODIUM BICARBONATE. [Concomitant]
     Active Substance: SODIUM BICARBONATE
  20. DIPHENHYDRAMINE. [Concomitant]
     Active Substance: DIPHENHYDRAMINE
  21. ACETAMINOPHEN. [Concomitant]
     Active Substance: ACETAMINOPHEN
  22. ACYCLOVIR. [Concomitant]
     Active Substance: ACYCLOVIR
  23. FLOMAX [Concomitant]
     Active Substance: TAMSULOSIN HYDROCHLORIDE
  24. LOVENOX [Concomitant]
     Active Substance: ENOXAPARIN SODIUM
  25. LEXIVA [Concomitant]
     Active Substance: FOSAMPRENAVIR CALCIUM
     Indication: HIV INFECTION
  26. CIALIS [Concomitant]
     Active Substance: TADALAFIL
  27. NORVIR [Concomitant]
     Active Substance: RITONAVIR
     Indication: HIV INFECTION
  28. CALCITRIOL. [Concomitant]
     Active Substance: CALCITRIOL
  29. EPOGEN [Concomitant]
     Active Substance: ERYTHROPOIETIN
  30. MARINOL [Concomitant]
     Active Substance: DRONABINOL
  31. LOPRESSOR [Concomitant]
     Active Substance: METOPROLOL TARTRATE
  32. BACTRIM [Concomitant]
     Active Substance: SULFAMETHOXAZOLE\TRIMETHOPRIM
  33. NICOTINE TRANSDERMAL SYSTEM [Concomitant]
     Active Substance: NICOTINE
  34. MORPHINE [Concomitant]
     Active Substance: MORPHINE
  35. TRUVADA [Suspect]
     Active Substance: EMTRICITABINE\TENOFOVIR DISOPROXIL FUMARATE
     Indication: HIV INFECTION
     Dosage: UNK
     Route: 048
     Dates: start: 2004, end: 201906
  36. FAMOTIDINE. [Concomitant]
     Active Substance: FAMOTIDINE
  37. EPZICOM [Concomitant]
     Active Substance: ABACAVIR SULFATE\LAMIVUDINE
     Indication: HIV INFECTION
  38. RETROVIR [Concomitant]
     Active Substance: ZIDOVUDINE
  39. SUSTIVA [Concomitant]
     Active Substance: EFAVIRENZ
     Indication: HIV INFECTION
  40. ASPIRIN. [Concomitant]
     Active Substance: ASPIRIN

REACTIONS (9)
  - Chronic kidney disease [Not Recovered/Not Resolved]
  - Tibia fracture [Unknown]
  - Multiple fractures [Unknown]
  - Renal failure [Unknown]
  - Chronic kidney disease [Unknown]
  - Pain [Unknown]
  - Ankle fracture [Recovered/Resolved]
  - Ankle fracture [Unknown]
  - Emotional distress [Unknown]

NARRATIVE: CASE EVENT DATE: 20110311
